FAERS Safety Report 10731378 (Version 2)
Quarter: 2015Q1

REPORT INFORMATION
  Report Type: Report from Study
  Country: CL (occurrence: CL)
  Receive Date: 20150122
  Receipt Date: 20150226
  Transmission Date: 20150721
  Serious: Yes (Other)
  Sender: FDA-Public Use
  Company Number: CL-ROCHE-1524960

PATIENT
  Age: 43 Year
  Sex: Female
  Weight: 63 kg

DRUGS (2)
  1. XELODA [Suspect]
     Active Substance: CAPECITABINE
     Indication: COLORECTAL CANCER
     Route: 048
     Dates: start: 201308, end: 201403
  2. XELODA [Suspect]
     Active Substance: CAPECITABINE
     Dosage: 14 DAYS PER CYCLE
     Route: 048
     Dates: start: 20140729

REACTIONS (4)
  - Tooth infection [Not Recovered/Not Resolved]
  - Hypoaesthesia [Unknown]
  - Fracture [Recovered/Resolved with Sequelae]
  - Swelling face [Not Recovered/Not Resolved]
